FAERS Safety Report 7365192-3 (Version None)
Quarter: 2011Q1

REPORT INFORMATION
  Report Type: 
  Country: None (occurrence: None)
  Receive Date: 20110321
  Receipt Date: 20110124
  Transmission Date: 20110831
  Serious: Yes (Other)
  Sender: FDA-Public Use
  Company Number: US-BAYER-201015162NA

PATIENT
  Sex: Female
  Weight: 66.5 kg

DRUGS (25)
  1. MAGNEVIST [Suspect]
     Indication: ANGIOGRAM
     Dates: start: 20060120, end: 20060120
  2. OPTIMARK [Suspect]
     Indication: ANGIOGRAM
  3. PROTONIX [Concomitant]
     Dosage: 40 MG DAILY
  4. IRON SUPPLEMENT [Concomitant]
     Dates: start: 20090101
  5. ZETIA [Concomitant]
     Dates: start: 20040101, end: 20060101
  6. EPO [Concomitant]
     Indication: ANAEMIA
     Dosage: WEEKLY
     Dates: start: 19950101
  7. HEPARIN [Concomitant]
     Dates: start: 19860101
  8. OMNISCAN [Suspect]
     Indication: ANGIOGRAM
  9. MULTIHANCE [Suspect]
     Indication: ANGIOGRAM
  10. MULTIHANCE [Suspect]
     Indication: NUCLEAR MAGNETIC RESONANCE IMAGING
  11. PREDNISONE [Concomitant]
     Dosage: 5 MG DAILY
     Route: 048
  12. PREMARIN [Concomitant]
     Route: 048
  13. PRAVASTATIN [Concomitant]
  14. MAGNEVIST [Suspect]
     Indication: NUCLEAR MAGNETIC RESONANCE IMAGING
     Route: 042
     Dates: start: 20060123, end: 20060123
  15. CONTRAST MEDIA [Suspect]
     Indication: COAGULOPATHY
  16. SYNTHROID [Concomitant]
     Dosage: 0.088 MG; 1/2 TABLET /DAY
  17. CONTRAST MEDIA [Suspect]
     Indication: THROMBOSIS
     Dates: start: 20060101, end: 20060101
  18. CONTRAST MEDIA [Suspect]
     Indication: IMAGING PROCEDURE
  19. ZEMPLAR [Concomitant]
     Indication: HYPERPARATHYROIDISM SECONDARY
     Dosage: DOSE: 2 MCG/DAY
  20. OMNISCAN [Suspect]
     Indication: NUCLEAR MAGNETIC RESONANCE IMAGING
  21. OPTIMARK [Suspect]
  22. PROHANCE [Suspect]
     Indication: ANGIOGRAM
  23. PROHANCE [Suspect]
     Indication: NUCLEAR MAGNETIC RESONANCE IMAGING
  24. CONTRAST MEDIA [Suspect]
     Indication: NUCLEAR MAGNETIC RESONANCE IMAGING
  25. RENAL [VITAMINS NOS] [Concomitant]
     Indication: VITAMIN SUPPLEMENTATION
     Dosage: DOSE: 1 CAPSULE DAILY

REACTIONS (18)
  - SKIN TIGHTNESS [None]
  - JOINT SWELLING [None]
  - JOINT RANGE OF MOTION DECREASED [None]
  - MUSCLE TIGHTNESS [None]
  - JOINT CONTRACTURE [None]
  - SKIN INDURATION [None]
  - CHEST DISCOMFORT [None]
  - NEPHROGENIC SYSTEMIC FIBROSIS [None]
  - BONE PAIN [None]
  - MUSCULOSKELETAL STIFFNESS [None]
  - BURNING SENSATION [None]
  - PEAU D'ORANGE [None]
  - SKIN HYPERTROPHY [None]
  - MUSCULAR WEAKNESS [None]
  - PAIN IN EXTREMITY [None]
  - OEDEMA PERIPHERAL [None]
  - GAIT DISTURBANCE [None]
  - SKIN FIBROSIS [None]
